FAERS Safety Report 18600719 (Version 2)
Quarter: 2021Q2

REPORT INFORMATION
  Report Type: Spontaneous
  Country: DE (occurrence: DE)
  Receive Date: 20201210
  Receipt Date: 20210503
  Transmission Date: 20210717
  Serious: Yes (Death, Hospitalization, Other)
  Sender: FDA-Public Use
  Company Number: NVSC2020DE328783

PATIENT
  Age: 39 Year
  Sex: Male

DRUGS (1)
  1. GILENYA [Suspect]
     Active Substance: FINGOLIMOD HYDROCHLORIDE
     Indication: RELAPSING-REMITTING MULTIPLE SCLEROSIS
     Dosage: 0.5 MG
     Route: 065
     Dates: start: 201404, end: 202010

REACTIONS (6)
  - Brain oedema [Fatal]
  - Right hemisphere deficit syndrome [Fatal]
  - Headache [Fatal]
  - Multiple sclerosis relapse [Unknown]
  - Cryptococcal meningoencephalitis [Fatal]
  - Aphasia [Fatal]

NARRATIVE: CASE EVENT DATE: 202010
